FAERS Safety Report 17578760 (Version 1)
Quarter: 2020Q1

REPORT INFORMATION
  Report Type: Spontaneous
  Country: US (occurrence: US)
  Receive Date: 20200324
  Receipt Date: 20200324
  Transmission Date: 20200409
  Serious: Yes (Life-Threatening, Hospitalization, Disabling, Other)
  Sender: FDA-Public Use
  Company Number: US-REGENERON PHARMACEUTICALS, INC.-2020-11990

PATIENT

DRUGS (5)
  1. OXYBUTYNIN. [Concomitant]
     Active Substance: OXYBUTYNIN CHLORIDE
     Indication: PRODUCT USED FOR UNKNOWN INDICATION
  2. LIBTAYO [Suspect]
     Active Substance: CEMIPLIMAB-RWLC
     Indication: SQUAMOUS CELL CARCINOMA
     Dosage: UNK, Q3W
     Route: 042
     Dates: start: 201907, end: 20191105
  3. LEVOTHYROXINE. [Concomitant]
     Active Substance: LEVOTHYROXINE
     Indication: PRODUCT USED FOR UNKNOWN INDICATION
  4. ENALAPRIL [Concomitant]
     Active Substance: ENALAPRIL
     Indication: PRODUCT USED FOR UNKNOWN INDICATION
  5. DILTIAZEM. [Concomitant]
     Active Substance: DILTIAZEM
     Indication: PRODUCT USED FOR UNKNOWN INDICATION

REACTIONS (5)
  - Drug ineffective [Not Recovered/Not Resolved]
  - Renal failure [Not Recovered/Not Resolved]
  - Pruritus [Not Recovered/Not Resolved]
  - Cardiac failure [Unknown]
  - Rash pruritic [Recovering/Resolving]

NARRATIVE: CASE EVENT DATE: 20190821
